FAERS Safety Report 25570344 (Version 1)
Quarter: 2025Q3

REPORT INFORMATION
  Report Type: Report from Study
  Country: US (occurrence: US)
  Receive Date: 20250717
  Receipt Date: 20250717
  Transmission Date: 20251021
  Serious: Yes (Other)
  Sender: SUNOVION
  Company Number: US-ENZYVANT THERAPEUTICS, INC.-US2023ENZ00035

PATIENT

DRUGS (3)
  1. RETHYMIC [Suspect]
     Active Substance: ALLOGENIC THYMOCYTE-DEPLETED THYMUS TISSUE-AGDC
     Indication: DiGeorge^s syndrome
     Route: 050
     Dates: start: 20230912, end: 20230912
  2. LAPINE T-LYMPHOCYTE IMMUNE GLOBULIN [Concomitant]
     Active Substance: LAPINE T-LYMPHOCYTE IMMUNE GLOBULIN
     Indication: Immunosuppression
     Dosage: 37 MG, QD
     Route: 042
     Dates: start: 20230907, end: 20230909
  3. CYCLOSPORINE [Concomitant]
     Active Substance: CYCLOSPORINE
     Route: 050
     Dates: start: 20230906

REACTIONS (1)
  - Human herpesvirus 6 infection [Recovered/Resolved]

NARRATIVE: CASE EVENT DATE: 20230925
